FAERS Safety Report 9474160 (Version 2)
Quarter: 2013Q3

REPORT INFORMATION
  Report Type: Spontaneous
  Country: US (occurrence: None)
  Receive Date: 20130820
  Receipt Date: 20130830
  Transmission Date: 20140515
  Serious: Yes (Other)
  Sender: FDA-Public Use
  Company Number: 2013SA080819

PATIENT
  Age: 50 Year
  Sex: Female

DRUGS (1)
  1. MENTHOL/PRAMOXINE HYDROCHLORIDE [Suspect]
     Dates: start: 20120428

REACTIONS (5)
  - Vulval disorder [None]
  - Application site burn [None]
  - Pain [None]
  - Pruritus [None]
  - Drug ineffective [None]
